FAERS Safety Report 9014536 (Version 1)
Quarter: 2013Q1

REPORT INFORMATION
  Report Type: Spontaneous
  Country: FR (occurrence: FR)
  Receive Date: 20130115
  Receipt Date: 20130115
  Transmission Date: 20140127
  Serious: Yes (Hospitalization)
  Sender: FDA-Public Use
  Company Number: FR-ABBOTT-13P-056-1034695-00

PATIENT
  Age: 3 Year
  Sex: Male

DRUGS (3)
  1. MICROPAKINE L.P. [Suspect]
     Indication: CONVULSION
     Route: 048
     Dates: start: 20120828, end: 20121028
  2. URBANYL [Suspect]
     Indication: STATUS EPILEPTICUS
     Dosage: DAILY
     Route: 048
     Dates: start: 20121023, end: 20121028
  3. RIVOTRIL [Suspect]
     Indication: STATUS EPILEPTICUS
     Route: 048
     Dates: start: 20121023, end: 20121023

REACTIONS (4)
  - Cerebellar syndrome [Unknown]
  - Abnormal behaviour [Unknown]
  - Speech disorder [Unknown]
  - Gait disturbance [Unknown]
